FAERS Safety Report 14332439 (Version 1)
Quarter: 2017Q4

REPORT INFORMATION
  Report Type: Report from Study
  Country: KR (occurrence: KR)
  Receive Date: 20171228
  Receipt Date: 20171228
  Transmission Date: 20180321
  Serious: Yes (Hospitalization)
  Sender: FDA-Public Use
  Company Number: KR-DSJP-DSJ-2017-159358

PATIENT

DRUGS (11)
  1. WHANIN CLONAZEPAM [Concomitant]
     Indication: DEPRESSION
     Dosage: 0.5 MG, QD
     Route: 048
     Dates: start: 20170213
  2. URSA [Concomitant]
     Active Substance: URSODIOL
     Indication: THROMBOTIC CEREBRAL INFARCTION
     Dosage: 100 MG, TID
     Route: 048
     Dates: start: 20170304
  3. EDOXABAN [Suspect]
     Active Substance: EDOXABAN TOSYLATE
     Indication: ATRIAL FIBRILLATION
     Dosage: 60MG/DAY
     Route: 048
     Dates: start: 20170331
  4. PENID [Concomitant]
     Indication: DEPRESSION
     Dosage: 10 MG, QD
     Route: 048
     Dates: start: 20170330
  5. LIPITOR [Concomitant]
     Active Substance: ATORVASTATIN CALCIUM
     Indication: THROMBOTIC CEREBRAL INFARCTION
     Dosage: 10 MG, QD
     Route: 048
     Dates: start: 20171215
  6. ULTRACET [Concomitant]
     Active Substance: ACETAMINOPHEN\TRAMADOL HYDROCHLORIDE
     Indication: THROMBOTIC CEREBRAL INFARCTION
     Dosage: 1 DF, BID
     Route: 048
     Dates: start: 20170223, end: 20170817
  7. LEXAPRO [Concomitant]
     Active Substance: ESCITALOPRAM OXALATE
     Indication: DEPRESSION
     Dosage: 5 MG, QD
     Route: 048
     Dates: start: 20170306
  8. ALPRAM [Concomitant]
     Active Substance: ALPRAZOLAM
     Indication: DEPRESSION
     Dosage: 0.125 MG, BID
     Route: 048
     Dates: start: 20170330, end: 20170817
  9. LYRICA [Concomitant]
     Active Substance: PREGABALIN
     Indication: THROMBOTIC CEREBRAL INFARCTION
     Dosage: 75 MG, BID
     Route: 048
     Dates: start: 20170222
  10. ROSUZET COMPOSITE PACK [Concomitant]
     Active Substance: EZETIMIBE\ROSUVASTATIN
     Indication: THROMBOTIC CEREBRAL INFARCTION
     Dosage: 10/5MG, QD
     Route: 048
     Dates: start: 20170330, end: 20171215
  11. NEXIUM [Concomitant]
     Active Substance: ESOMEPRAZOLE MAGNESIUM
     Indication: THROMBOTIC CEREBRAL INFARCTION
     Dosage: 20 MG, QD
     Route: 048
     Dates: start: 20171215

REACTIONS (1)
  - Seizure [Recovered/Resolved]

NARRATIVE: CASE EVENT DATE: 20171215
